FAERS Safety Report 4915998-2 (Version None)
Quarter: 2006Q1

REPORT INFORMATION
  Report Type: 
  Country: None (occurrence: None)
  Receive Date: 20060214
  Receipt Date: 20060206
  Transmission Date: 20060701
  Serious: Yes (Other)
  Sender: FDA-Public Use
  Company Number: HQWYE702807FEB06

PATIENT
  Age: 43 Year
  Sex: Male
  Weight: 99.88 kg

DRUGS (4)
  1. EFFEXOR XR [Suspect]
     Indication: ANXIETY
     Dosage: ORAL; SEE IMAGE
     Route: 048
     Dates: start: 20050801, end: 20060101
  2. EFFEXOR XR [Suspect]
     Indication: DEPRESSION
     Dosage: ORAL; SEE IMAGE
     Route: 048
     Dates: start: 20050801, end: 20060101
  3. EFFEXOR XR [Suspect]
     Indication: ANXIETY
     Dosage: ORAL; SEE IMAGE
     Route: 048
     Dates: start: 20060101
  4. EFFEXOR XR [Suspect]
     Indication: DEPRESSION
     Dosage: ORAL; SEE IMAGE
     Route: 048
     Dates: start: 20060101

REACTIONS (10)
  - BLOOD PRESSURE INCREASED [None]
  - DRUG INEFFECTIVE [None]
  - DRUG WITHDRAWAL SYNDROME [None]
  - HEADACHE [None]
  - HEART RATE INCREASED [None]
  - HYPOAESTHESIA [None]
  - INITIAL INSOMNIA [None]
  - MUSCLE TWITCHING [None]
  - PARAESTHESIA [None]
  - TINNITUS [None]
